FAERS Safety Report 6078437-7 (Version None)
Quarter: 2009Q1

REPORT INFORMATION
  Report Type: 
  Country: None (occurrence: None)
  Receive Date: 20090212
  Receipt Date: 20090205
  Transmission Date: 20090719
  Serious: Yes (Hospitalization)
  Sender: FDA-Public Use
  Company Number: IPS_01467_2009

PATIENT
  Sex: Female

DRUGS (1)
  1. APOKYN [Suspect]
     Indication: DRUG USE FOR UNKNOWN INDICATION
     Dosage: (0.2 ML, SUBCUTANEOUS)
     Route: 058
     Dates: start: 20090118

REACTIONS (3)
  - ASTHENIA [None]
  - CONVULSION [None]
  - GAIT DISTURBANCE [None]
